FAERS Safety Report 5944508-6 (Version None)
Quarter: 2008Q4

REPORT INFORMATION
  Report Type: 
  Country: None (occurrence: None)
  Receive Date: 20081105
  Receipt Date: 20081027
  Transmission Date: 20090506
  Serious: Yes (Hospitalization, Other)
  Sender: FDA-Public Use
  Company Number: 2008SP020952

PATIENT
  Age: 72 Year
  Sex: Female

DRUGS (2)
  1. CLARAMAX (DESLORATADINE) (DESLORATADINE) [Suspect]
     Indication: HYPERSENSITIVITY
     Dosage: 1 DF ONCE PO
     Route: 048
     Dates: start: 20081012, end: 20081012
  2. CLARATYNE [Concomitant]

REACTIONS (4)
  - OEDEMA MOUTH [None]
  - REACTION TO COLOURING [None]
  - REACTION TO DRUG EXCIPIENTS [None]
  - SWOLLEN TONGUE [None]
